FAERS Safety Report 10210870 (Version 3)
Quarter: 2014Q3

REPORT INFORMATION
  Report Type: Report from Study
  Country: JP (occurrence: JP)
  Receive Date: 20140602
  Receipt Date: 20140703
  Transmission Date: 20150326
  Serious: Yes (Hospitalization, Other)
  Sender: FDA-Public Use
  Company Number: JP-009507513-1403JPN001476

PATIENT
  Age: 71 Year
  Sex: Female
  Weight: 53 kg

DRUGS (9)
  1. REBETOL [Suspect]
     Active Substance: RIBAVIRIN
     Indication: HEPATIC CIRRHOSIS
     Dosage: 200 MG, QD
     Route: 048
     Dates: start: 20120903, end: 20120923
  2. PEGINTRON [Suspect]
     Active Substance: PEGINTERFERON ALFA-2B
     Indication: HEPATIC CIRRHOSIS
     Dosage: 50 MICROGRAM, QW
     Route: 058
     Dates: start: 20120903, end: 20130819
  3. LOXONIN [Concomitant]
     Active Substance: LOXOPROFEN SODIUM
     Indication: PROPHYLAXIS
     Dosage: 60 MG, TID  FORMULATION POR
     Route: 048
     Dates: start: 20120903, end: 20130826
  4. URDESTON [Concomitant]
     Indication: HEPATIC CIRRHOSIS
     Dosage: 200 MG, TID
     Route: 048
     Dates: start: 20120903
  5. NEO-MINOPHAGEN C [Concomitant]
     Active Substance: AMMONIUM GLYCYRRHIZATE
     Indication: HEPATIC CIRRHOSIS
     Dosage: 60 ML TIW
     Route: 042
     Dates: start: 20120903
  6. MUCOSTA [Concomitant]
     Active Substance: REBAMIPIDE
     Indication: GASTRITIS PROPHYLAXIS
     Dosage: 100 MG, TID   FORMULATION POR
     Route: 048
     Dates: start: 20120903, end: 20130826
  7. EBASTEL [Concomitant]
     Active Substance: EBASTINE
     Indication: PRURITUS GENERALISED
     Dosage: 10 MG, QD
     Route: 048
     Dates: start: 20120903
  8. REBETOL [Suspect]
     Active Substance: RIBAVIRIN
     Dosage: 400 MG, QD
     Route: 048
     Dates: start: 20120924, end: 20121021
  9. REBETOL [Suspect]
     Active Substance: RIBAVIRIN
     Dosage: 200 MG, QD
     Route: 048
     Dates: start: 20121022, end: 20130826

REACTIONS (3)
  - Hepatic cancer [Recovered/Resolved]
  - Haemoglobin decreased [Recovered/Resolved]
  - Therapeutic embolisation [Unknown]

NARRATIVE: CASE EVENT DATE: 20121022
